FAERS Safety Report 10219975 (Version 1)
Quarter: 2014Q1

REPORT INFORMATION
  Report Type: Spontaneous
  Country: US (occurrence: None)
  Receive Date: 20140306
  Receipt Date: 20140306
  Transmission Date: 20141002
  Serious: Yes (Other)
  Sender: FDA-Public Use
  Company Number: 163-21880-13012145

PATIENT
  Age: 67 Year
  Sex: Female
  Weight: 67 kg

DRUGS (6)
  1. REVLIMID [Suspect]
     Indication: MYELODYSPLASTIC SYNDROME
     Route: 048
     Dates: start: 20080401, end: 20121023
  2. ASPIRIN 81 (ACETYLSALICYLIC ACID) (TABLETS) [Concomitant]
  3. ESSENTIAL WOMAN (MULTIVITAMINS) [Concomitant]
  4. IMODIUM ADVANCED (IMODIUM ADVANCED) [Concomitant]
  5. LACTAID FAST ACT (TILACTASE) [Concomitant]
  6. VITAMIN C (ASCORBIC ACID) (TABLETS) [Concomitant]

REACTIONS (4)
  - White blood cell count decreased [None]
  - Lactose intolerance [None]
  - Neutropenia [None]
  - Diarrhoea [None]
